FAERS Safety Report 11239753 (Version 2)
Quarter: 2015Q3

REPORT INFORMATION
  Report Type: Spontaneous
  Country: TR (occurrence: TR)
  Receive Date: 20150706
  Receipt Date: 20150713
  Transmission Date: 20151125
  Serious: Yes (Hospitalization)
  Sender: FDA-Public Use
  Company Number: PHHY2015TR080474

PATIENT
  Sex: Male

DRUGS (1)
  1. ARCAPTA NEOHALER [Suspect]
     Active Substance: INDACATEROL MALEATE
     Indication: PRODUCT USED FOR UNKNOWN INDICATION
     Dosage: UNK, QD
     Route: 055

REACTIONS (3)
  - Arrhythmia [Recovering/Resolving]
  - Palpitations [Unknown]
  - Concomitant disease aggravated [Recovering/Resolving]
